FAERS Safety Report 10273744 (Version 1)
Quarter: 2014Q2

REPORT INFORMATION
  Report Type: Spontaneous
  Country: US (occurrence: None)
  Receive Date: 20140630
  Receipt Date: 20140630
  Transmission Date: 20141212
  Serious: Yes (Hospitalization)
  Sender: FDA-Public Use
  Company Number: None

PATIENT
  Age: 59 Year
  Sex: Male
  Weight: 94.4 kg

DRUGS (2)
  1. CARBIDOPA/LEVODOPA [Suspect]
     Indication: PARKINSON^S DISEASE
     Dosage: 50/200 MG OTHER PO
     Route: 048
     Dates: start: 20140326, end: 20140525
  2. CARBIDOPA/LEVODOPA [Suspect]
     Dosage: 25/100 MG OTHER PO
     Route: 048
     Dates: start: 20140331, end: 20140525

REACTIONS (4)
  - Dopamine dysregulation syndrome [None]
  - Asthenia [None]
  - Fall [None]
  - Dyskinesia [None]
